FAERS Safety Report 8265937-4 (Version None)
Quarter: 2012Q2

REPORT INFORMATION
  Report Type: 
  Country: None (occurrence: None)
  Receive Date: 20120406
  Receipt Date: 20120330
  Transmission Date: 20120825
  Serious: Yes (Hospitalization, Other)
  Sender: FDA-Public Use
  Company Number: US-MERCK-1111USA02471

PATIENT
  Age: 60 Year
  Sex: Female
  Weight: 68 kg

DRUGS (3)
  1. FOSAMAX [Suspect]
     Indication: OSTEOPOROSIS
     Route: 048
     Dates: start: 20000201, end: 20080101
  2. BONIVA [Suspect]
     Indication: OSTEOPOROSIS
     Route: 048
     Dates: start: 20090101, end: 20100105
  3. BONIVA [Suspect]
     Indication: PAIN IN JAW
     Route: 048
     Dates: start: 20090101, end: 20100105

REACTIONS (37)
  - OSTEONECROSIS OF JAW [None]
  - OSTEOMYELITIS [None]
  - MUSCLE SPASMS [None]
  - HYPERTENSION [None]
  - GINGIVAL RECESSION [None]
  - GINGIVAL INFECTION [None]
  - EAR INFECTION [None]
  - TONGUE ULCERATION [None]
  - SENSITIVITY OF TEETH [None]
  - VISUAL ACUITY REDUCED [None]
  - DIABETES MELLITUS [None]
  - MYOCARDIAL INFARCTION [None]
  - STOMATITIS [None]
  - EXOSTOSIS [None]
  - CHEST PAIN [None]
  - GINGIVAL DISORDER [None]
  - ORAL INFECTION [None]
  - LATEX ALLERGY [None]
  - HYPERSENSITIVITY [None]
  - TOOTH FRACTURE [None]
  - DYSPNOEA [None]
  - THROAT TIGHTNESS [None]
  - SINUS DISORDER [None]
  - PEPTIC ULCER [None]
  - NECK PAIN [None]
  - ANAEMIA [None]
  - PAIN IN EXTREMITY [None]
  - EYE DISORDER [None]
  - BLOOD CHOLESTEROL INCREASED [None]
  - CARPAL TUNNEL SYNDROME [None]
  - DYSPHAGIA [None]
  - BREATH ODOUR [None]
  - GASTRIC DISORDER [None]
  - OROPHARYNGEAL PAIN [None]
  - DENTAL CARIES [None]
  - RENAL DISORDER [None]
  - GINGIVAL BLEEDING [None]
